FAERS Safety Report 8881971 (Version 1)
Quarter: 2012Q4

REPORT INFORMATION
  Report Type: Report from Study
  Country: GB (occurrence: GB)
  Receive Date: 20121102
  Receipt Date: 20121102
  Transmission Date: 20130627
  Serious: Yes (Hospitalization, Other)
  Sender: FDA-Public Use
  Company Number: GB-JNJFOC-20121100075

PATIENT
  Age: 53 Year
  Sex: Male
  Weight: 99.5 kg

DRUGS (18)
  1. USTEKINUMAB [Suspect]
     Indication: PSORIASIS
     Route: 058
     Dates: start: 20091112
  2. ACITRETIN [Concomitant]
     Route: 065
     Dates: start: 20080115
  3. FUROSEMIDE [Concomitant]
     Route: 065
     Dates: end: 20120816
  4. LANSOPRAZOLE [Concomitant]
     Route: 065
  5. NEBIVOLOL [Concomitant]
     Route: 065
     Dates: end: 20120810
  6. PERINDOPRIL [Concomitant]
     Route: 065
     Dates: end: 20120810
  7. SIMVASTATIN [Concomitant]
     Route: 065
     Dates: start: 20080923, end: 20120810
  8. ESCITALOPRAM [Concomitant]
     Route: 065
     Dates: end: 20120810
  9. CANDESARTAN [Concomitant]
     Route: 065
     Dates: start: 20090903
  10. ASPIRIN [Concomitant]
     Route: 065
     Dates: start: 20090828
  11. AZITHROMYCIN [Concomitant]
     Route: 065
     Dates: start: 20120822
  12. BISOPROLOL [Concomitant]
     Route: 065
     Dates: start: 20120810
  13. AMIODARONE [Concomitant]
     Route: 065
     Dates: start: 20120810
  14. ATORVASTATIN [Concomitant]
     Route: 065
     Dates: start: 20120810
  15. DULOXETINE [Concomitant]
     Route: 065
     Dates: start: 20120813
  16. ALLOPURINOL [Concomitant]
     Route: 065
     Dates: start: 20120816
  17. BUMETANIDE [Concomitant]
     Route: 065
     Dates: start: 20120816
  18. ZOPICLONE [Concomitant]
     Route: 065
     Dates: start: 20120816

REACTIONS (2)
  - Pneumonia [Not Recovered/Not Resolved]
  - Lower respiratory tract infection [Unknown]
